FAERS Safety Report 8536469-0 (Version None)
Quarter: 2012Q3

REPORT INFORMATION
  Report Type: 
  Country: None (occurrence: None)
  Receive Date: 20120718
  Receipt Date: 20120718
  Transmission Date: 20120928
  Serious: Yes (Other)
  Sender: FDA-Public Use
  Company Number: None

PATIENT
  Sex: Male

DRUGS (2)
  1. LISINOPRIL [Concomitant]
  2. CIPRO [Suspect]
     Indication: GASTROINTESTINAL INFECTION
     Dosage: 750MG 2 TIMES A DAY PO  ONCE
     Route: 048

REACTIONS (2)
  - PARAESTHESIA [None]
  - PAIN IN EXTREMITY [None]
